FAERS Safety Report 14884864 (Version 2)
Quarter: 2018Q2

REPORT INFORMATION
  Report Type: Report from Study
  Country: None (occurrence: FR)
  Receive Date: 20180511
  Receipt Date: 20180531
  Transmission Date: 20180711
  Serious: Yes (Death, Other)
  Sender: FDA-Public Use
  Company Number: FR-BAUSCH-BL-2018-013199

PATIENT
  Age: 62 Year
  Sex: Male

DRUGS (26)
  1. MYFORTIC [Suspect]
     Active Substance: MYCOPHENOLATE SODIUM
     Indication: IMMUNOSUPPRESSANT DRUG THERAPY
     Dosage: QD
     Route: 065
     Dates: start: 20140111, end: 20140811
  2. PROGRAF [Suspect]
     Active Substance: TACROLIMUS\TACROLIMUS ANHYDROUS
     Indication: LIVER TRANSPLANT
     Dosage: QD
     Route: 065
     Dates: start: 20140125, end: 20140831
  3. PROGRAF [Suspect]
     Active Substance: TACROLIMUS\TACROLIMUS ANHYDROUS
     Indication: IMMUNOSUPPRESSANT DRUG THERAPY
     Route: 065
     Dates: start: 20140901, end: 20140902
  4. PROGRAF [Suspect]
     Active Substance: TACROLIMUS\TACROLIMUS ANHYDROUS
     Dosage: QD
     Route: 065
     Dates: start: 20160113, end: 20160304
  5. DICLOFENAC SODIUM. [Suspect]
     Active Substance: DICLOFENAC SODIUM
     Dosage: QD
     Route: 065
     Dates: start: 20160323
  6. MYFORTIC [Suspect]
     Active Substance: MYCOPHENOLATE SODIUM
     Indication: LIVER TRANSPLANT
     Dosage: QD
     Route: 065
     Dates: start: 20140905, end: 20150521
  7. PROGRAF [Suspect]
     Active Substance: TACROLIMUS\TACROLIMUS ANHYDROUS
     Dosage: QD
     Route: 065
     Dates: start: 20140903, end: 20151119
  8. CORTANCYL [Suspect]
     Active Substance: PREDNISONE
     Dosage: QD
     Route: 065
     Dates: start: 20151120
  9. CERTICAN [Suspect]
     Active Substance: EVEROLIMUS
     Indication: IMMUNOSUPPRESSANT DRUG THERAPY
  10. IMUREL [Suspect]
     Active Substance: AZATHIOPRINE SODIUM
     Indication: IMMUNOSUPPRESSANT DRUG THERAPY
     Dosage: QD
     Route: 065
     Dates: start: 20150718, end: 20150906
  11. MYFORTIC [Suspect]
     Active Substance: MYCOPHENOLATE SODIUM
     Route: 065
     Dates: start: 20150522, end: 20150717
  12. PROGRAF [Suspect]
     Active Substance: TACROLIMUS\TACROLIMUS ANHYDROUS
     Dosage: QD
     Route: 065
     Dates: start: 20160323
  13. CERTICAN [Suspect]
     Active Substance: EVEROLIMUS
     Indication: PROPHYLAXIS AGAINST TRANSPLANT REJECTION
  14. PROGRAF [Suspect]
     Active Substance: TACROLIMUS\TACROLIMUS ANHYDROUS
     Dosage: QD
     Route: 065
     Dates: start: 20151008, end: 20151019
  15. PROGRAF [Suspect]
     Active Substance: TACROLIMUS\TACROLIMUS ANHYDROUS
     Dosage: QD
     Route: 065
     Dates: start: 20151120, end: 20151204
  16. DICLOFENAC SODIUM. [Suspect]
     Active Substance: DICLOFENAC SODIUM
     Dosage: QD
     Route: 065
     Dates: start: 20151120, end: 20151204
  17. PROGRAF [Suspect]
     Active Substance: TACROLIMUS\TACROLIMUS ANHYDROUS
     Dosage: QD
     Route: 048
     Dates: start: 20151020, end: 20151119
  18. PROGRAF [Suspect]
     Active Substance: TACROLIMUS\TACROLIMUS ANHYDROUS
     Route: 065
     Dates: start: 20160305, end: 20160322
  19. CORTANCYL [Suspect]
     Active Substance: PREDNISONE
     Indication: IMMUNOSUPPRESSANT DRUG THERAPY
     Route: 065
     Dates: start: 20140125, end: 20150428
  20. CERTICAN [Suspect]
     Active Substance: EVEROLIMUS
     Indication: LIVER TRANSPLANT
     Dosage: QD
     Route: 048
     Dates: start: 20151205, end: 20160112
  21. DICLOFENAC SODIUM. [Suspect]
     Active Substance: DICLOFENAC SODIUM
     Indication: PRODUCT USED FOR UNKNOWN INDICATION
     Dosage: QD
     Route: 065
     Dates: start: 20140901, end: 20140902
  22. DICLOFENAC SODIUM. [Suspect]
     Active Substance: DICLOFENAC SODIUM
     Dosage: QD
     Route: 065
     Dates: start: 20160305, end: 20160322
  23. MERCAPTOPURINE. [Suspect]
     Active Substance: MERCAPTOPURINE
     Indication: PRODUCT USED FOR UNKNOWN INDICATION
     Route: 065
     Dates: start: 20150910
  24. DICLOFENAC SODIUM. [Suspect]
     Active Substance: DICLOFENAC SODIUM
     Dosage: QD
     Route: 048
     Dates: start: 20140903, end: 20151119
  25. DICLOFENAC SODIUM. [Suspect]
     Active Substance: DICLOFENAC SODIUM
     Dosage: QD
     Route: 065
     Dates: start: 20160113, end: 20160304
  26. CORTANCYL [Suspect]
     Active Substance: PREDNISONE
     Dosage: QD
     Route: 065
     Dates: start: 20150429, end: 20151119

REACTIONS (5)
  - Renal impairment [Fatal]
  - Back pain [Fatal]
  - Weight decreased [Recovered/Resolved]
  - Chronic kidney disease [Fatal]
  - Diarrhoea [Fatal]

NARRATIVE: CASE EVENT DATE: 20150123
